FAERS Safety Report 8824689 (Version 7)
Quarter: 2017Q2

REPORT INFORMATION
  Report Type: Report from Study
  Country: CZ (occurrence: CZ)
  Receive Date: 20121004
  Receipt Date: 20170413
  Transmission Date: 20170830
  Serious: Yes (Death, Hospitalization, Disabling, Other)
  Sender: FDA-Public Use
  Company Number: CZ-ACTELION-A-CH2012-71784

PATIENT
  Age: 11 Year
  Sex: Male
  Weight: 44 kg

DRUGS (4)
  1. ZAVESCA [Suspect]
     Active Substance: MIGLUSTAT
     Indication: NIEMANN-PICK DISEASE
     Dosage: 200 MG, BID
     Route: 048
     Dates: start: 20110905, end: 20120830
  2. ZAVESCA [Suspect]
     Active Substance: MIGLUSTAT
     Dosage: 200 MG, BID
     Route: 048
     Dates: start: 20160405, end: 20170330
  3. ZAVESCA [Suspect]
     Active Substance: MIGLUSTAT
     Dosage: 100 MG, BID
     Route: 048
     Dates: start: 20120922
  4. ZAVESCA [Suspect]
     Active Substance: MIGLUSTAT
     Dosage: 200 MG, BID
     Route: 048
     Dates: start: 20130310, end: 20160120

REACTIONS (33)
  - Increased upper airway secretion [Recovered/Resolved]
  - Thrombocytopenia [Not Recovered/Not Resolved]
  - Drug level below therapeutic [Fatal]
  - Respiratory tract infection [Recovered/Resolved with Sequelae]
  - Productive cough [Recovered/Resolved with Sequelae]
  - Motor dysfunction [Recovering/Resolving]
  - Encopresis [Recovered/Resolved]
  - Disease progression [Recovering/Resolving]
  - Pneumonia aspiration [Recovered/Resolved with Sequelae]
  - Dysphagia [Recovering/Resolving]
  - Seizure [Fatal]
  - Niemann-Pick disease [Recovering/Resolving]
  - Gait disturbance [Recovering/Resolving]
  - Gastrointestinal disorder [Recovering/Resolving]
  - Drug intolerance [Unknown]
  - Refusal of treatment by patient [Recovering/Resolving]
  - Aggression [Recovering/Resolving]
  - Epilepsy [Fatal]
  - Cardiopulmonary failure [Fatal]
  - Epistaxis [Recovered/Resolved with Sequelae]
  - Speech disorder [Recovering/Resolving]
  - Salivary hypersecretion [Recovering/Resolving]
  - Generalised tonic-clonic seizure [Fatal]
  - Vomiting [Recovering/Resolving]
  - Enuresis [Recovered/Resolved]
  - Ataxia [Recovering/Resolving]
  - Respiratory failure [Recovered/Resolved with Sequelae]
  - Pneumonia [Recovered/Resolved with Sequelae]
  - Mental status changes [Recovering/Resolving]
  - Packed red blood cell transfusion [Recovered/Resolved with Sequelae]
  - Gastrostomy [Unknown]
  - Tremor [Not Recovered/Not Resolved]
  - Weight decreased [Recovered/Resolved]

NARRATIVE: CASE EVENT DATE: 20120701
